FAERS Safety Report 8224865-0 (Version None)
Quarter: 2012Q1

REPORT INFORMATION
  Report Type: 
  Country: None (occurrence: None)
  Receive Date: 20120321
  Receipt Date: 20120306
  Transmission Date: 20120608
  Serious: Yes (Hospitalization)
  Sender: FDA-Public Use
  Company Number: US-ROCHE-1040669

PATIENT
  Sex: Male
  Weight: 105.6 kg

DRUGS (19)
  1. GEMFIBROZIL [Concomitant]
     Indication: HYPERLIPIDAEMIA
  2. METFORMIN HCL [Concomitant]
     Indication: DIABETES MELLITUS
     Dates: start: 20110711
  3. NAPROXEN [Concomitant]
     Indication: BACK PAIN
     Dates: start: 20080101
  4. DURAGESIC-100 [Concomitant]
     Indication: BACK PAIN
     Dosage: 1 PATCH = 50UG/HR
     Dates: start: 20111214
  5. AVASTIN [Suspect]
     Indication: NON-SMALL CELL LUNG CANCER
     Dosage: GIVEN ON DAY 1 OF EACH CYCLE (21 DAYS). LAST DOSE PRIOR TO SAES: 01/FEB/2012 (CYCLE 7)
     Route: 042
     Dates: start: 20110921
  6. DOCETAXEL [Suspect]
     Indication: NON-SMALL CELL LUNG CANCER
     Dosage: GIVEN ON DAY 1 OF EACH CYCLE (21 DAYS) FOR 4 CYCLES. LAST DOSE PRIOR TO SAES: 30/NOV/2011 (CYCLE 4)
     Route: 042
     Dates: start: 20110921, end: 20111130
  7. LISINOPRIL [Concomitant]
     Indication: HYPERTENSION
     Dates: start: 20090101
  8. FLEXAL [Concomitant]
     Indication: BACK PAIN
     Dates: start: 20080101
  9. WELLBUTRIN [Concomitant]
     Indication: EX-TOBACCO USER
     Dates: start: 20110912
  10. PERCOCET [Concomitant]
     Indication: BACK PAIN
     Dosage: 10 TO 500 MG
     Dates: start: 20111214
  11. PROAIR HFA [Concomitant]
     Indication: DYSPNOEA
     Dates: start: 20100101
  12. FENTANYL-100 [Concomitant]
     Indication: PAIN
  13. CARBOPLATIN [Suspect]
     Indication: NON-SMALL CELL LUNG CANCER
     Dosage: GIVEN ON DAY 1 OF EACH CYCLE (21 DAYS) FOR 4 CYCLES. LAST DOSE PRIOR TO SAES: 30/NOV/2011 (CYCLE 4)
     Route: 042
     Dates: start: 20110921, end: 20111130
  14. FLEXERIL [Concomitant]
     Indication: BACK PAIN
     Dates: start: 20080101
  15. ZOFRAN [Concomitant]
     Indication: NAUSEA
     Dates: start: 20111006
  16. DURAGESIC-100 [Concomitant]
     Indication: ARTHRALGIA
  17. TARCEVA [Suspect]
     Indication: NON-SMALL CELL LUNG CANCER
     Dosage: LAST DOSE PRIOR TO SAES: 18/FEB/2012 (CYCLE 7)
     Route: 048
     Dates: start: 20111221
  18. CELEXA [Concomitant]
     Indication: DEPRESSION
     Dates: start: 20110711
  19. PERCOCET [Concomitant]
     Indication: ARTHRALGIA

REACTIONS (4)
  - CHRONIC OBSTRUCTIVE PULMONARY DISEASE [None]
  - PNEUMONIA [None]
  - BRONCHITIS [None]
  - DYSPNOEA [None]
